FAERS Safety Report 19776695 (Version 1)
Quarter: 2021Q3

REPORT INFORMATION
  Report Type: Spontaneous
  Country: FR (occurrence: FR)
  Receive Date: 20210902
  Receipt Date: 20210902
  Transmission Date: 20211014
  Serious: Yes (Hospitalization)
  Sender: FDA-Public Use
  Company Number: FR-DRREDDYS-CLI/FRA/21/0139402

PATIENT
  Age: 59 Year
  Sex: Female
  Weight: 61 kg

DRUGS (12)
  1. BORTEZOMIB. [Suspect]
     Active Substance: BORTEZOMIB
     Dates: start: 20200512, end: 20200512
  2. BORTEZOMIB. [Suspect]
     Active Substance: BORTEZOMIB
     Dates: start: 20200609, end: 20200609
  3. DEXAMETHASONE. [Suspect]
     Active Substance: DEXAMETHASONE
     Indication: PLASMA CELL MYELOMA
     Dosage: DI, D4, D8, DII
     Dates: start: 20200318
  4. BORTEZOMIB. [Suspect]
     Active Substance: BORTEZOMIB
     Indication: PLASMA CELL MYELOMA
     Dates: start: 20200316, end: 20200316
  5. BORTEZOMIB. [Suspect]
     Active Substance: BORTEZOMIB
     Dates: start: 20200414, end: 20200414
  6. BENDAMUSTINE [Suspect]
     Active Substance: BENDAMUSTINE
     Dates: start: 20200512
  7. DEXAMETHASONE. [Suspect]
     Active Substance: DEXAMETHASONE
     Dates: start: 20200414
  8. BENDAMUSTINE [Suspect]
     Active Substance: BENDAMUSTINE
     Dosage: DI, D4
     Dates: start: 20200316
  9. BENDAMUSTINE [Suspect]
     Active Substance: BENDAMUSTINE
     Dates: start: 20200414
  10. BORTEZOMIB. [Suspect]
     Active Substance: BORTEZOMIB
     Dosage: DI, D4, D8, DII
     Dates: start: 20200318
  11. BENDAMUSTINE [Suspect]
     Active Substance: BENDAMUSTINE
     Indication: PLASMA CELL MYELOMA
     Dates: start: 20200716
  12. BENDAMUSTINE [Suspect]
     Active Substance: BENDAMUSTINE
     Dates: start: 20200609

REACTIONS (10)
  - Radiation skin injury [Recovered/Resolved]
  - Rhinorrhoea [Not Recovered/Not Resolved]
  - Pain [Not Recovered/Not Resolved]
  - Sciatica [Recovered/Resolved]
  - Pain in jaw [Not Recovered/Not Resolved]
  - Musculoskeletal pain [Recovered/Resolved]
  - Sciatica [Recovered/Resolved]
  - Neutropenia [Recovered/Resolved]
  - Oedema [Recovered/Resolved]
  - Asthenia [Not Recovered/Not Resolved]

NARRATIVE: CASE EVENT DATE: 20200409
